FAERS Safety Report 15981052 (Version 1)
Quarter: 2019Q1

REPORT INFORMATION
  Report Type: Report from Study
  Country: FR (occurrence: FR)
  Receive Date: 20190219
  Receipt Date: 20190219
  Transmission Date: 20190418
  Serious: Yes (Hospitalization)
  Sender: FDA-Public Use
  Company Number: FR-BIOVITRUM-2019FR0279

PATIENT
  Age: 3 Month
  Sex: Male
  Weight: 7.7 kg

DRUGS (4)
  1. ZYMAD [Concomitant]
     Active Substance: CHOLECALCIFEROL
  2. ASPERGIC [Concomitant]
     Active Substance: ASPIRIN DL-LYSINE
  3. PARACETAMOL [Concomitant]
     Active Substance: ACETAMINOPHEN
  4. KINERET [Suspect]
     Active Substance: ANAKINRA
     Indication: KAWASAKI^S DISEASE
     Dates: start: 20171114, end: 20171115

REACTIONS (3)
  - Blood potassium increased [Recovered/Resolved]
  - Product administration error [Recovered/Resolved]
  - Accidental overdose [Recovered/Resolved]

NARRATIVE: CASE EVENT DATE: 20171114
